FAERS Safety Report 6107118-6 (Version None)
Quarter: 2009Q1

REPORT INFORMATION
  Report Type: 
  Country: None (occurrence: None)
  Receive Date: 20090309
  Receipt Date: 20090304
  Transmission Date: 20090719
  Serious: Yes (Life-Threatening)
  Sender: FDA-Public Use
  Company Number: PHBS2009CA01015

PATIENT
  Age: 53 Year
  Sex: Male

DRUGS (2)
  1. METOPROLOL [Suspect]
  2. METFORMIN HCL [Suspect]
     Dosage: 50 G/DAY

REACTIONS (13)
  - ABDOMINAL PAIN [None]
  - ASTHENIA [None]
  - BRADYCARDIA [None]
  - HAEMODIALYSIS [None]
  - HEART RATE DECREASED [None]
  - HYPERLACTACIDAEMIA [None]
  - HYPOGLYCAEMIA [None]
  - HYPOTENSION [None]
  - INTENTIONAL OVERDOSE [None]
  - METABOLIC ACIDOSIS [None]
  - PACEMAKER GENERATED RHYTHM [None]
  - RENAL FAILURE ACUTE [None]
  - RESUSCITATION [None]
